FAERS Safety Report 4984877-7 (Version None)
Quarter: 2006Q2

REPORT INFORMATION
  Report Type: 
  Country: None (occurrence: None)
  Receive Date: 20060427
  Receipt Date: 20060415
  Transmission Date: 20061013
  Serious: Yes (Other)
  Sender: FDA-Public Use
  Company Number: GB-ROCHE-445280

PATIENT
  Age: 22 Year
  Sex: Male

DRUGS (1)
  1. ROACCUTANE [Suspect]
     Indication: ACNE
     Route: 065
     Dates: start: 20050615

REACTIONS (3)
  - DRUG INEFFECTIVE [None]
  - MALAISE [None]
  - PAROXYSMAL NOCTURNAL HAEMOGLOBINURIA [None]
